FAERS Safety Report 23747373 (Version 1)
Quarter: 2024Q2

REPORT INFORMATION
  Report Type: Spontaneous
  Country: US (occurrence: US)
  Receive Date: 20240416
  Receipt Date: 20240416
  Transmission Date: 20240716
  Serious: Yes (Other)
  Sender: FDA-Public Use
  Company Number: US-PFIZER INC-PV202400048977

PATIENT
  Age: 18 Year
  Sex: Male

DRUGS (2)
  1. MILRINONE [Suspect]
     Active Substance: MILRINONE
     Indication: Cardiac failure
     Dosage: UNK
  2. MILRINONE [Suspect]
     Active Substance: MILRINONE
     Indication: Heart disease congenital

REACTIONS (1)
  - Drug dependence [Unknown]
